FAERS Safety Report 16102721 (Version 1)
Quarter: 2019Q1

REPORT INFORMATION
  Report Type: Spontaneous
  Country: US (occurrence: US)
  Receive Date: 20190321
  Receipt Date: 20190321
  Transmission Date: 20190418
  Serious: No
  Sender: FDA-Public Use
  Company Number: US-ARRAY-2018-04911

PATIENT

DRUGS (2)
  1. MEKTOVI [Suspect]
     Active Substance: BINIMETINIB
     Indication: COLITIS ULCERATIVE
     Dosage: 30 MG, BID
     Route: 048
     Dates: start: 20180917, end: 201812
  2. BRAFTOVI [Suspect]
     Active Substance: ENCORAFENIB
     Indication: COLITIS ULCERATIVE
     Dosage: 450 MG, QD
     Route: 048
     Dates: start: 20180917, end: 201812

REACTIONS (5)
  - Back pain [Unknown]
  - Arthralgia [Unknown]
  - Product use in unapproved indication [Unknown]
  - Off label use [Unknown]
  - Groin pain [Unknown]

NARRATIVE: CASE EVENT DATE: 20180917
